FAERS Safety Report 4746984-3 (Version None)
Quarter: 2005Q3

REPORT INFORMATION
  Report Type: 
  Country: None (occurrence: None)
  Receive Date: 20050817
  Receipt Date: 20050812
  Transmission Date: 20060218
  Serious: Yes (Life-Threatening, Hospitalization)
  Sender: FDA-Public Use
  Company Number: US-BRISTOL-MYERS SQUIBB COMPANY-13075544

PATIENT
  Age: 76 Year
  Sex: Male
  Weight: 70 kg

DRUGS (4)
  1. CETUXIMAB [Suspect]
     Indication: OESOPHAGEAL CARCINOMA
     Dosage: HELD 05-AUG-2005. WEEKS 1-9, WEEKS 15-44.
     Route: 042
     Dates: start: 20050729, end: 20050729
  2. CISPLATIN [Suspect]
     Indication: OESOPHAGEAL CARCINOMA
     Dosage: WEEKS 2, 3, 5,8.  HELD (DATE NOT REPORTED).
     Route: 042
     Dates: start: 20050805, end: 20050805
  3. IRINOTECAN [Suspect]
     Indication: OESOPHAGEAL CARCINOMA
     Dosage: WEEKS 2, 3, 5, 8.  HELD (DATE NOT REPORTED).
     Route: 042
     Dates: start: 20050805, end: 20050805
  4. RADIATION THERAPY [Suspect]
     Indication: OESOPHAGEAL CARCINOMA
     Dosage: DAY (1-5) WEEK 2-7.  180 GCY.  HELD (DATE NOT REPORTED).
     Dates: start: 20050809, end: 20050809

REACTIONS (4)
  - DEHYDRATION [None]
  - LEUKOPENIA [None]
  - NEUTROPENIA [None]
  - RASH [None]
